FAERS Safety Report 6445038-8 (Version None)
Quarter: 2009Q4

REPORT INFORMATION
  Report Type: 
  Country: None (occurrence: None)
  Receive Date: 20091118
  Receipt Date: 20091107
  Transmission Date: 20100525
  Serious: Yes (Other)
  Sender: FDA-Public Use
  Company Number: US-PFIZER INC-2009295429

PATIENT
  Age: 81 Year
  Sex: Male

DRUGS (6)
  1. SUTENT [Suspect]
     Dosage: 50 MG, UNK
     Dates: start: 20091001
  2. ASPIRIN [Concomitant]
  3. AMLODIPINE [Concomitant]
  4. TAMSULOSIN HYDROCHLORIDE [Concomitant]
  5. HYDROCHLOROTHIAZIDE [Concomitant]
     Dosage: 12.5 MG, UNK
  6. LOVASTATIN [Concomitant]

REACTIONS (2)
  - BLOOD CREATININE INCREASED [None]
  - NEPHROPATHY TOXIC [None]
